FAERS Safety Report 4540975-3 (Version None)
Quarter: 2004Q4

REPORT INFORMATION
  Report Type: 
  Country: None (occurrence: None)
  Receive Date: 20041228
  Receipt Date: 20041213
  Transmission Date: 20050328
  Serious: Yes (Hospitalization)
  Sender: FDA-Public Use
  Company Number: 2004CG02503

PATIENT
  Age: 83 Year
  Sex: Female

DRUGS (10)
  1. MOPRAL [Suspect]
     Dosage: 20 MG QD PO
     Route: 048
     Dates: start: 20040601, end: 20041110
  2. TRILEPTAL [Suspect]
     Dosage: 750 MG QD PO
     Route: 048
     Dates: start: 20040823, end: 20041110
  3. DAFALGAN [Suspect]
     Dosage: 1 GR TID PO
     Route: 048
     Dates: end: 20041110
  4. TOPALGIC [Concomitant]
  5. COUMADIN [Concomitant]
  6. TORENTAL [Concomitant]
  7. DEROXAT [Concomitant]
  8. ZOLPIDEM TARTRATE [Concomitant]
  9. FORLAX [Concomitant]
  10. CLONAZEPAM [Concomitant]

REACTIONS (8)
  - BONE MARROW TOXICITY [None]
  - COUGH [None]
  - GRANULOCYTOPENIA [None]
  - HAEMOGLOBIN DECREASED [None]
  - LEUKOPENIA [None]
  - MEAN CELL VOLUME INCREASED [None]
  - PAIN [None]
  - RED BLOOD CELL COUNT DECREASED [None]
